FAERS Safety Report 24288378 (Version 2)
Quarter: 2025Q2

REPORT INFORMATION
  Report Type: Report from Study
  Country: US (occurrence: US)
  Receive Date: 20240906
  Receipt Date: 20250526
  Transmission Date: 20250716
  Serious: Yes (Other)
  Sender: ABBVIE
  Company Number: US-ABBVIE-5715058

PATIENT
  Age: 76 Year
  Sex: Female

DRUGS (2)
  1. SKYRIZI [Suspect]
     Active Substance: RISANKIZUMAB-RZAA
     Indication: Psoriasis
     Route: 058
     Dates: start: 20230224
  2. SKYRIZI [Suspect]
     Active Substance: RISANKIZUMAB-RZAA
     Route: 058

REACTIONS (8)
  - Cataract [Unknown]
  - Dry skin [Unknown]
  - Psoriasis [Unknown]
  - Arthritis [Unknown]
  - Psoriatic arthropathy [Unknown]
  - Tooth extraction [Unknown]
  - Dental operation [Recovered/Resolved]
  - Dental implantation [Unknown]

NARRATIVE: CASE EVENT DATE: 20230101
